FAERS Safety Report 9264839 (Version 2)
Quarter: 2013Q2

REPORT INFORMATION
  Report Type: Spontaneous
  Country: US (occurrence: US)
  Receive Date: 20130501
  Receipt Date: 20130510
  Transmission Date: 20140414
  Serious: Yes (Life-Threatening)
  Sender: FDA-Public Use
  Company Number: PHEH2013US009418

PATIENT
  Sex: Female

DRUGS (7)
  1. EXELON [Suspect]
     Dosage: 6 MG, UNK
  2. EXELON [Concomitant]
     Dosage: 9.5 MG, UNK
     Route: 062
  3. DEZACOR [Concomitant]
  4. CRESTOR [Concomitant]
  5. LEVOXYL [Concomitant]
  6. NAMENDA [Concomitant]
  7. VASOCOR [Concomitant]

REACTIONS (9)
  - Apparent death [Unknown]
  - Drug intolerance [Unknown]
  - Mental disorder [Unknown]
  - Hypersensitivity [Unknown]
  - Diarrhoea [Unknown]
  - Hyperhidrosis [Unknown]
  - Asthenia [Unknown]
  - Nausea [Unknown]
  - Malaise [Unknown]
